FAERS Safety Report 24741502 (Version 3)
Quarter: 2025Q1

REPORT INFORMATION
  Report Type: Spontaneous
  Country: JP (occurrence: JP)
  Receive Date: 20241217
  Receipt Date: 20250114
  Transmission Date: 20250409
  Serious: Yes (Other)
  Sender: ASTELLAS
  Company Number: JP-ASTELLAS-2024-AER-004348

PATIENT
  Age: 63 Year
  Sex: Male
  Weight: 49 kg

DRUGS (9)
  1. VYLOY [Suspect]
     Active Substance: ZOLBETUXIMAB-CLZB
     Indication: Gastric cancer
     Route: 042
     Dates: start: 20240903, end: 20240903
  2. CAPECITABINE [Suspect]
     Active Substance: CAPECITABINE
     Indication: Gastric cancer
     Route: 048
     Dates: start: 20240903
  3. CAPECITABINE [Suspect]
     Active Substance: CAPECITABINE
     Route: 048
     Dates: start: 20240924, end: 20240924
  4. CAPECITABINE [Suspect]
     Active Substance: CAPECITABINE
     Route: 048
     Dates: start: 20241119
  5. OXALIPLATIN [Suspect]
     Active Substance: OXALIPLATIN
     Indication: Gastric cancer
     Route: 042
     Dates: start: 20240903
  6. OXALIPLATIN [Suspect]
     Active Substance: OXALIPLATIN
     Route: 042
     Dates: start: 20240924, end: 20240924
  7. CHLORPROMAZINE [Concomitant]
     Active Substance: CHLORPROMAZINE
     Indication: Hiccups
     Route: 065
  8. KERATINAMIN KOWA cream [Concomitant]
     Indication: Product used for unknown indication
     Route: 065
     Dates: start: 20240917
  9. RINDERON Ophthalmic Solution [Concomitant]
     Indication: Uveitis
     Route: 065
     Dates: start: 20240917

REACTIONS (6)
  - Uveitis [Not Recovered/Not Resolved]
  - Platelet count decreased [Recovered/Resolved]
  - Hiccups [Recovering/Resolving]
  - Stomatitis [Recovered/Resolved]
  - Malaise [Recovered/Resolved]
  - Palmar-plantar erythrodysaesthesia syndrome [Recovered/Resolved]

NARRATIVE: CASE EVENT DATE: 20240904
